FAERS Safety Report 9678269 (Version 2)
Quarter: 2013Q4

REPORT INFORMATION
  Report Type: Spontaneous
  Country: US (occurrence: US)
  Receive Date: 20131108
  Receipt Date: 20131202
  Transmission Date: 20140711
  Serious: Yes (Hospitalization, Other)
  Sender: FDA-Public Use
  Company Number: US-PFIZER INC-2013316898

PATIENT
  Age: 72 Year
  Sex: Male

DRUGS (11)
  1. LYRICA [Suspect]
     Indication: PAIN
     Dosage: 150 MG, 2X/DAY
     Route: 048
  2. PROTONIX [Suspect]
     Dosage: 40 MG, 2X/DAY (1 TABLET)
  3. NITROSTAT [Suspect]
     Dosage: (0.4, 1 TABLET UNDER TONGUE, MAY REPEAT IN 5 MINS IF NEEDED)
     Route: 060
  4. KLONOPIN [Concomitant]
     Dosage: 1 MG 1 TABLET IN THE MORNING, 1 TABLET AT LUNCH, 2 TABLETS AT BED TIME
  5. NIACIN [Concomitant]
     Dosage: 500 MG 2 TABLETS IN THE MORNING, 2 TABLETS AT BEDTIME
  6. RANEXA [Concomitant]
     Dosage: 500 MG, 2X/DAY (1 TABLET)
     Route: 048
  7. RANEXA [Concomitant]
     Dosage: 1000 MG, 2X/DAY
     Route: 048
  8. PLAVIX [Concomitant]
     Dosage: 75 MG, DAILY (1 TABLET)
  9. IRON [Concomitant]
     Dosage: 27 MG, DAILY (1 TABLET)
  10. FISH OIL [Concomitant]
     Dosage: 500 MG, DAILY (1 TABLET)
  11. MULTIVITAMINS [Concomitant]
     Dosage: 1 DAILY

REACTIONS (5)
  - Cardiac disorder [Unknown]
  - Gastrointestinal disorder [Unknown]
  - Deafness [Unknown]
  - Ocular vascular disorder [Unknown]
  - Blindness unilateral [Unknown]
